FAERS Safety Report 12542190 (Version 1)
Quarter: 2016Q3

REPORT INFORMATION
  Report Type: Spontaneous
  Country: CA (occurrence: CA)
  Receive Date: 20160708
  Receipt Date: 20160708
  Transmission Date: 20161109
  Serious: Yes (Other)
  Sender: FDA-Public Use
  Company Number: CA-SAOL THERAPEUTICS-2016SAO00070

PATIENT

DRUGS (1)
  1. LIORESAL [Suspect]
     Active Substance: BACLOFEN
     Route: 037

REACTIONS (3)
  - Unresponsive to stimuli [Unknown]
  - Hypotonia [Unknown]
  - Miosis [Unknown]

NARRATIVE: CASE EVENT DATE: 20160530
